FAERS Safety Report 12432241 (Version 1)
Quarter: 2016Q2

REPORT INFORMATION
  Report Type: Spontaneous
  Country: US (occurrence: None)
  Receive Date: 20160602
  Receipt Date: 20160602
  Transmission Date: 20160815
  Serious: Yes (Other)
  Sender: FDA-Public Use
  Company Number: None

PATIENT
  Age: 56 Year
  Sex: Female
  Weight: 83.3 kg

DRUGS (1)
  1. LEVOFLOXACIN 750MG/150ML 5%DEXTROSE HIKMA FARMACEUTICA (POTUGAL) S.A.. [Suspect]
     Active Substance: LEVOFLOXACIN
     Indication: PNEUMONIA
     Route: 042
     Dates: start: 20160530, end: 20160601

REACTIONS (4)
  - Infusion site pruritus [None]
  - Infusion site erythema [None]
  - Infusion site swelling [None]
  - Infusion site pain [None]

NARRATIVE: CASE EVENT DATE: 20160601
